FAERS Safety Report 6856614-2 (Version None)
Quarter: 2010Q3

REPORT INFORMATION
  Report Type: 
  Country: None (occurrence: None)
  Receive Date: 20100716
  Receipt Date: 20100716
  Transmission Date: 20110219
  Serious: No
  Sender: FDA-Public Use
  Company Number: None

PATIENT
  Age: 60 Year
  Sex: Male
  Weight: 61.4 kg

DRUGS (2)
  1. BULLFROG QUIK GEL SUNBLOCK SPF 36 [Suspect]
     Indication: PROPHYLAXIS AGAINST SOLAR RADIATION
     Dosage: NUMEROUS TIMES
     Dates: start: 20090101, end: 20100101
  2. RITE AID OIL FREE FACES LOTION SPF 30 [Suspect]

REACTIONS (2)
  - HYPERSENSITIVITY [None]
  - RHINORRHOEA [None]
